FAERS Safety Report 5607246-5 (Version None)
Quarter: 2008Q1

REPORT INFORMATION
  Report Type: 
  Country: None (occurrence: None)
  Receive Date: 20080111
  Receipt Date: 20070727
  Transmission Date: 20080703
  Serious: Yes (Hospitalization)
  Sender: FDA-Public Use
  Company Number: HQWYE170424JUL03

PATIENT
  Age: 52 Year
  Sex: Female

DRUGS (6)
  1. PREMPRO [Suspect]
     Dosage: ORAL
     Route: 048
     Dates: start: 19950101, end: 20011001
  2. CYCRIN [Suspect]
  3. ESTRACE [Suspect]
  4. MEDROXYPROGESTERONE ACETATE [Suspect]
  5. PREMARIN [Suspect]
  6. PROVERA [Suspect]

REACTIONS (1)
  - DEEP VEIN THROMBOSIS [None]
